FAERS Safety Report 16792771 (Version 7)
Quarter: 2020Q2

REPORT INFORMATION
  Report Type: Spontaneous
  Country: FR (occurrence: FR)
  Receive Date: 20190910
  Receipt Date: 20200622
  Transmission Date: 20200713
  Serious: Yes (Death, Life-Threatening, Hospitalization, Other)
  Sender: FDA-Public Use
  Company Number: PHHY2019FR207971

PATIENT
  Age: 37 Year
  Sex: Male
  Weight: 91 kg

DRUGS (10)
  1. ALPRAZOLAM. [Suspect]
     Active Substance: ALPRAZOLAM
     Indication: SUICIDE ATTEMPT
     Dosage: POSSIBLY 15 MG TOTAL, 30 MG OR 0.33MG/KG
     Route: 048
  2. LEVOTHYROXINE SODIUM. [Suspect]
     Active Substance: LEVOTHYROXINE SODIUM
     Indication: SUICIDE ATTEMPT
     Dosage: UNK
     Route: 048
  3. TRIMEBUTINE [Suspect]
     Active Substance: TRIMEBUTINE
     Indication: SUICIDE ATTEMPT
     Dosage: POSSIBLY 2 G TOTAL
     Route: 048
  4. PREDNISONE. [Suspect]
     Active Substance: PREDNISONE
     Indication: SUICIDE ATTEMPT
     Dosage: POSSIBLY 600 MG TOTAL
     Route: 048
  5. IBUPROFEN. [Suspect]
     Active Substance: IBUPROFEN
     Indication: INTENTIONAL OVERDOSE
     Dosage: 2.4 G
     Route: 048
  6. PAROXETINE HYDROCHLORIDE. [Suspect]
     Active Substance: PAROXETINE HYDROCHLORIDE
     Indication: SUICIDE ATTEMPT
     Dosage: 560 MG, UNK
     Route: 048
  7. COLCHICINE OPOCALCIUM [Suspect]
     Active Substance: COLCHICINE
     Indication: INTENTIONAL OVERDOSE
     Dosage: 30 MG (30 MG OR 0.33MG/KG)
     Route: 048
  8. IBUPROFEN. [Suspect]
     Active Substance: IBUPROFEN
     Indication: SUICIDE ATTEMPT
     Dosage: 12.4 G (INGESTED IBUPROFEN (12.4 G)
     Route: 048
  9. COLCHICINE OPOCALCIUM [Suspect]
     Active Substance: COLCHICINE
     Indication: SUICIDE ATTEMPT
     Dosage: POSSIBLY 0.30 MG TOTAL
     Route: 048
  10. DESLORATADINE. [Suspect]
     Active Substance: DESLORATADINE
     Indication: SUICIDE ATTEMPT
     Dosage: 150 MG, UNK
     Route: 048

REACTIONS (17)
  - Leukocytosis [Fatal]
  - Toxicity to various agents [Fatal]
  - Shock [Fatal]
  - Diarrhoea [Fatal]
  - Hyperthermia [Fatal]
  - Hepatic failure [Fatal]
  - Disseminated intravascular coagulation [Fatal]
  - Intestinal ischaemia [Fatal]
  - Muscle spasms [Fatal]
  - Hyperleukocytosis [Fatal]
  - Intentional overdose [Fatal]
  - Acute kidney injury [Fatal]
  - Completed suicide [Fatal]
  - Vomiting [Fatal]
  - Multiple organ dysfunction syndrome [Fatal]
  - Abdominal pain [Fatal]
  - Patient uncooperative [Fatal]
